FAERS Safety Report 10236773 (Version 1)
Quarter: 2014Q2

REPORT INFORMATION
  Report Type: Spontaneous
  Country: US (occurrence: US)
  Receive Date: 20140613
  Receipt Date: 20140613
  Transmission Date: 20141212
  Serious: Yes (Other)
  Sender: FDA-Public Use
  Company Number: US-GLAXOSMITHKLINE-B1003376A

PATIENT
  Age: 33 Year
  Sex: Male

DRUGS (1)
  1. EPOPROSTENOL [Suspect]
     Indication: PULMONARY ARTERIAL HYPERTENSION
     Route: 065

REACTIONS (11)
  - Hyperthyroidism [Unknown]
  - Goitre [Unknown]
  - Dyspnoea [Unknown]
  - Ill-defined disorder [Unknown]
  - Erythema [Unknown]
  - Blood thyroid stimulating hormone decreased [Unknown]
  - Thyroxine free increased [Unknown]
  - Tri-iodothyronine increased [Unknown]
  - Thyroidectomy [Unknown]
  - Dysphagia [Unknown]
  - Weight decreased [Unknown]
